FAERS Safety Report 9747235 (Version 1)
Quarter: 2013Q4

REPORT INFORMATION
  Report Type: Spontaneous
  Country: US (occurrence: US)
  Receive Date: 20131212
  Receipt Date: 20131212
  Transmission Date: 20140711
  Serious: No
  Sender: FDA-Public Use
  Company Number: US-009507513-1312USA003587

PATIENT
  Sex: Male

DRUGS (1)
  1. VICTRELIS [Suspect]
     Dosage: UNK
     Route: 048
     Dates: start: 20131010

REACTIONS (2)
  - Cataract operation [Unknown]
  - Cataract [Unknown]
